FAERS Safety Report 14559356 (Version 1)
Quarter: 2018Q1

REPORT INFORMATION
  Report Type: Spontaneous
  Country: US (occurrence: US)
  Receive Date: 20180221
  Receipt Date: 20180221
  Transmission Date: 20180509
  Serious: Yes (Life-Threatening, Hospitalization, Other)
  Sender: FDA-Public Use
  Company Number: None

PATIENT
  Age: 62 Year
  Sex: Male
  Weight: 111.13 kg

DRUGS (5)
  1. CARVEDILOL. [Concomitant]
     Active Substance: CARVEDILOL
  2. MEMANTINE HCL [Concomitant]
     Active Substance: MEMANTINE
  3. L-ARGININE [Concomitant]
     Active Substance: ARGININE
  4. RIVAROXABAN [Suspect]
     Active Substance: RIVAROXABAN
     Indication: ATRIAL FIBRILLATION
     Dosage: 1 TABLET WITH EVENING MEAL, MOUTH
     Route: 048
     Dates: start: 20150615, end: 20171231
  5. COQ10 [Concomitant]
     Active Substance: UBIDECARENONE

REACTIONS (2)
  - Abdominal pain [None]
  - Internal haemorrhage [None]

NARRATIVE: CASE EVENT DATE: 20171231
